FAERS Safety Report 10813124 (Version 1)
Quarter: 2015Q1

REPORT INFORMATION
  Report Type: Report from Study
  Country: US (occurrence: US)
  Receive Date: 20150218
  Receipt Date: 20150218
  Transmission Date: 20150721
  Serious: No
  Sender: FDA-Public Use
  Company Number: US-ABBVIE-14K-163-1276397-00

PATIENT
  Age: 76 Year
  Sex: Female

DRUGS (9)
  1. PROLIA [Concomitant]
     Active Substance: DENOSUMAB
     Indication: PRODUCT USED FOR UNKNOWN INDICATION
  2. LIPITOR [Concomitant]
     Active Substance: ATORVASTATIN CALCIUM
     Indication: PRODUCT USED FOR UNKNOWN INDICATION
  3. LEUCOVORIN [Concomitant]
     Active Substance: LEUCOVORIN
     Indication: PRODUCT USED FOR UNKNOWN INDICATION
     Dosage: MORNING AFTER METHOTREXATE
  4. PENICILLIN NOS [Concomitant]
     Active Substance: PENICILLIN
     Indication: PRODUCT USED FOR UNKNOWN INDICATION
  5. CALCIUM PLUS VITAMIN D [Concomitant]
     Active Substance: CALCIUM\VITAMIN D
     Indication: PRODUCT USED FOR UNKNOWN INDICATION
  6. PREDNISONE. [Suspect]
     Active Substance: PREDNISONE
     Indication: RHEUMATOID ARTHRITIS
     Dates: start: 20140814
  7. METHOTREXATE [Suspect]
     Active Substance: METHOTREXATE
     Indication: RHEUMATOID ARTHRITIS
     Dates: end: 201408
  8. HUMIRA [Suspect]
     Active Substance: ADALIMUMAB
     Indication: RHEUMATOID ARTHRITIS
     Dates: start: 20140515
  9. METHOTREXATE [Suspect]
     Active Substance: METHOTREXATE
     Dates: start: 201408

REACTIONS (5)
  - Device issue [Unknown]
  - Underdose [Unknown]
  - Rheumatoid arthritis [Not Recovered/Not Resolved]
  - Drug ineffective [Unknown]
  - Muscle tightness [Not Recovered/Not Resolved]

NARRATIVE: CASE EVENT DATE: 201407
